FAERS Safety Report 9703295 (Version 4)
Quarter: 2014Q2

REPORT INFORMATION
  Report Type: Spontaneous
  Country: US (occurrence: US)
  Receive Date: 20131122
  Receipt Date: 20140411
  Transmission Date: 20141212
  Serious: Yes (Other)
  Sender: FDA-Public Use
  Company Number: US-009507513-1311USA007005

PATIENT
  Age: 22 None
  Sex: Female

DRUGS (1)
  1. IMPLANON [Suspect]
     Indication: CONTRACEPTION
     Dosage: UNK
     Route: 059
     Dates: end: 20140114

REACTIONS (4)
  - Surgery [Unknown]
  - General anaesthesia [Unknown]
  - Weight increased [Unknown]
  - Medical device complication [Recovered/Resolved]
